FAERS Safety Report 19044498 (Version 2)
Quarter: 2022Q1

REPORT INFORMATION
  Report Type: Spontaneous
  Country: US (occurrence: US)
  Receive Date: 20210323
  Receipt Date: 20220113
  Transmission Date: 20220423
  Serious: Yes (Life-Threatening, Hospitalization, Other)
  Sender: FDA-Public Use
  Company Number: US-MYLANLABS-2021M1017613

PATIENT
  Age: 59 Year
  Sex: Female

DRUGS (2)
  1. OCTREOTIDE [Suspect]
     Active Substance: OCTREOTIDE
     Indication: Carcinoid crisis
     Dosage: 500 MICROGRAM, QH (REGIMEN 1)
     Route: 065
  2. OCTREOTIDE [Suspect]
     Active Substance: OCTREOTIDE
     Dosage: UNK (REGIMEN 2)
     Route: 065

REACTIONS (11)
  - Cardiogenic shock [Recovered/Resolved]
  - Arteriospasm coronary [Recovered/Resolved]
  - Myocardial reperfusion injury [Recovered/Resolved]
  - Cardiomyopathy [Recovered/Resolved]
  - Left ventricular dysfunction [Recovered/Resolved]
  - Left ventricular end-diastolic pressure increased [Recovered/Resolved]
  - Hyperhidrosis [Unknown]
  - Delirium [Unknown]
  - Acute pulmonary oedema [Unknown]
  - Tachycardia [Recovered/Resolved]
  - Cardiac failure [Recovered/Resolved]
